FAERS Safety Report 4518822-5 (Version None)
Quarter: 2004Q4

REPORT INFORMATION
  Report Type: 
  Country: None (occurrence: None)
  Receive Date: 20041206
  Receipt Date: 20041122
  Transmission Date: 20050328
  Serious: Yes (Death, Hospitalization)
  Sender: FDA-Public Use
  Company Number: JP-JNJFOC-20041106059

PATIENT
  Sex: Female

DRUGS (2)
  1. REMICADE [Suspect]
     Indication: RHEUMATOID ARTHRITIS
     Route: 042
  2. RHEUMATREX [Concomitant]
     Route: 049

REACTIONS (6)
  - DEATH [None]
  - INTERSTITIAL LUNG DISEASE [None]
  - MOUTH ULCERATION [None]
  - PYREXIA [None]
  - RESPIRATORY ARREST [None]
  - SUDDEN DEATH [None]
